FAERS Safety Report 10302018 (Version 1)
Quarter: 2014Q3

REPORT INFORMATION
  Report Type: Spontaneous
  Country: IT (occurrence: None)
  Receive Date: 20140709
  Receipt Date: 20140709
  Transmission Date: 20150326
  Serious: Yes (Hospitalization)
  Sender: FDA-Public Use
  Company Number: AUR-APL-2014-07103

PATIENT
  Age: 26 Year
  Sex: Male

DRUGS (3)
  1. AMOXICILLIN 1G (AMOXICILLIN) UNKNOWN, 1G [Suspect]
     Active Substance: AMOXICILLIN
     Indication: HELICOBACTER INFECTION
     Dosage: TOTAL
     Route: 048
     Dates: start: 20140524, end: 20140524
  2. CLARITHROMYCIN (CLARITHROMYCIN) [Concomitant]
     Active Substance: CLARITHROMYCIN
  3. LANSOPRAZOLE (LANSOPRAZOLE) [Concomitant]
     Active Substance: LANSOPRAZOLE

REACTIONS (3)
  - Malaise [None]
  - Oropharyngeal pain [None]
  - Pruritus [None]

NARRATIVE: CASE EVENT DATE: 20140524
